FAERS Safety Report 11489700 (Version 1)
Quarter: 2015Q3

REPORT INFORMATION
  Report Type: Spontaneous
  Country: FR (occurrence: FR)
  Receive Date: 20150910
  Receipt Date: 20150910
  Transmission Date: 20151125
  Serious: Yes (Hospitalization, Other)
  Sender: FDA-Public Use
  Company Number: FR-GLAXOSMITHKLINE-FR2014GSK040885

PATIENT
  Age: 23 Year
  Sex: Male
  Weight: 55 kg

DRUGS (3)
  1. AMOXICILLINE [Suspect]
     Active Substance: AMOXICILLIN
     Indication: PRODUCT USED FOR UNKNOWN INDICATION
     Dosage: 12 G, QD
     Route: 042
     Dates: start: 20141002, end: 20141017
  2. ZOVIRAX [Suspect]
     Active Substance: ACYCLOVIR
     Indication: MENINGITIS ASEPTIC
     Dosage: UNK
     Route: 042
     Dates: start: 20141003, end: 20141004
  3. CEFOTAXIME [Suspect]
     Active Substance: CEFOTAXIME SODIUM
     Indication: PRODUCT USED FOR UNKNOWN INDICATION
     Dosage: 12 G, QD
     Route: 042
     Dates: start: 20141003, end: 20141004

REACTIONS (3)
  - Acute kidney injury [Recovered/Resolved]
  - Renal tubular necrosis [Recovered/Resolved]
  - Incorrect dose administered [Unknown]

NARRATIVE: CASE EVENT DATE: 20141003
